FAERS Safety Report 8367271-0 (Version None)
Quarter: 2012Q2

REPORT INFORMATION
  Report Type: 
  Country: None (occurrence: None)
  Receive Date: 20120517
  Receipt Date: 20120507
  Transmission Date: 20120825
  Serious: Yes (Hospitalization, Other)
  Sender: FDA-Public Use
  Company Number: GB-TEVA-330675ISR

PATIENT
  Age: 70 Year
  Sex: Female

DRUGS (5)
  1. HUMAN INSULATARD [Concomitant]
  2. METFORMIN HCL [Suspect]
     Indication: TYPE 2 DIABETES MELLITUS
     Dosage: 1G BD
     Route: 048
     Dates: end: 20120310
  3. METFORMIN HCL [Suspect]
     Dosage: 500 MILLIGRAM;
     Dates: start: 20110801, end: 20120310
  4. ASPIRIN [Concomitant]
  5. SIMVASTATIN [Concomitant]

REACTIONS (9)
  - PNEUMONIA [None]
  - NAUSEA [None]
  - RENAL IMPAIRMENT [None]
  - HYPOGLYCAEMIA [None]
  - METABOLIC ACIDOSIS [None]
  - CARDIOVASCULAR DISORDER [None]
  - LACTIC ACIDOSIS [None]
  - VOMITING [None]
  - MALAISE [None]
